FAERS Safety Report 5267810-2 (Version None)
Quarter: 2007Q1

REPORT INFORMATION
  Report Type: 
  Country: None (occurrence: None)
  Receive Date: 20070316
  Receipt Date: 20070306
  Transmission Date: 20070707
  Serious: Yes (Other)
  Sender: FDA-Public Use
  Company Number: US-PFIZER INC-2007018236

PATIENT
  Sex: Male
  Weight: 74.8 kg

DRUGS (6)
  1. LIPITOR [Suspect]
     Indication: BLOOD CHOLESTEROL INCREASED
  2. NEXIUM [Concomitant]
  3. FUROSEMIDE [Concomitant]
  4. DETROL LA [Concomitant]
  5. FLOMAX [Concomitant]
  6. VITAMINS [Concomitant]

REACTIONS (5)
  - ASTHENIA [None]
  - BLOOD CHOLESTEROL INCREASED [None]
  - DIZZINESS [None]
  - FATIGUE [None]
  - GAIT DISTURBANCE [None]
